FAERS Safety Report 23219023 (Version 1)
Quarter: 2023Q4

REPORT INFORMATION
  Report Type: Spontaneous
  Country: US (occurrence: US)
  Receive Date: 20231122
  Receipt Date: 20231122
  Transmission Date: 20240110
  Serious: No
  Sender: FDA-Public Use
  Company Number: US-BIOGEN-2023BI01237173

PATIENT
  Sex: Female

DRUGS (4)
  1. TECFIDERA [Suspect]
     Active Substance: DIMETHYL FUMARATE
     Indication: Multiple sclerosis
     Dosage: TAKE 1 CAPSULE BY MOUTH TWICE A DAY
     Route: 050
  2. FISH OIL [Concomitant]
     Active Substance: FISH OIL
     Route: 050
  3. ALLERGY RELIEF [Concomitant]
     Route: 050
  4. PROVIGIL [Concomitant]
     Active Substance: MODAFINIL
     Route: 050

REACTIONS (2)
  - Anaemia [Unknown]
  - Menstruation irregular [Unknown]
